FAERS Safety Report 15427239 (Version 1)
Quarter: 2018Q3

REPORT INFORMATION
  Report Type: Spontaneous
  Country: US (occurrence: US)
  Receive Date: 20180925
  Receipt Date: 20180925
  Transmission Date: 20181010
  Serious: Yes (Other)
  Sender: FDA-Public Use
  Company Number: US-INDIVIOR LIMITED-INDV-110780-2018

PATIENT
  Sex: Female

DRUGS (5)
  1. PRAMIPEXOLE. [Suspect]
     Active Substance: PRAMIPEXOLE
     Indication: DYSKINESIA
  2. SUBOXONE [Suspect]
     Active Substance: BUPRENORPHINE HYDROCHLORIDE\NALOXONE HYDROCHLORIDE
     Indication: PAIN
     Dosage: 4MG FILM EVERY 6 HOURS OR 1 AND HALF FILM EVERY 8 HOURS
     Route: 060
  3. PRAMIPEXOLE. [Suspect]
     Active Substance: PRAMIPEXOLE
     Indication: RESTLESS LEGS SYNDROME
     Dosage: UNK
     Route: 065
  4. ZANAFLEX [Suspect]
     Active Substance: TIZANIDINE HYDROCHLORIDE
     Indication: MUSCLE SPASMS
     Dosage: UNK
     Route: 065
  5. PRAMIPEXOLE. [Suspect]
     Active Substance: PRAMIPEXOLE
     Indication: MYOCLONUS

REACTIONS (6)
  - Off label use [Unknown]
  - Fatigue [Unknown]
  - Loss of consciousness [Recovered/Resolved]
  - Inappropriate schedule of drug administration [Unknown]
  - Wrong technique in product usage process [Unknown]
  - Drug ineffective for unapproved indication [Unknown]

NARRATIVE: CASE EVENT DATE: 201804
